FAERS Safety Report 4970315-7 (Version None)
Quarter: 2006Q2

REPORT INFORMATION
  Report Type: 
  Country: None (occurrence: None)
  Receive Date: 20060412
  Receipt Date: 20060130
  Transmission Date: 20061013
  Serious: Yes (Hospitalization)
  Sender: FDA-Public Use
  Company Number: PHEH2006US01524

PATIENT
  Age: 86 Year
  Sex: Female
  Weight: 49.433 kg

DRUGS (5)
  1. DIOVAN [Concomitant]
     Indication: HYPERTENSION
     Dosage: 160 MG, QD
     Route: 048
  2. DARVOCET [Concomitant]
     Indication: PAIN
     Dosage: 100 #50, PRN
     Route: 048
     Dates: start: 20060130
  3. GLEEVEC [Suspect]
     Indication: CHRONIC MYELOID LEUKAEMIA
     Dosage: 400 MG, QD
     Route: 048
     Dates: start: 20050301, end: 20051201
  4. GLEEVEC [Suspect]
     Dosage: 200 MG, QOD
     Route: 048
     Dates: start: 20051201
  5. GLEEVEC [Suspect]
     Dosage: 300 MG, QOD
     Route: 048
     Dates: start: 20051201

REACTIONS (7)
  - ANAEMIA [None]
  - FALL [None]
  - MUSCLE SPASMS [None]
  - PAIN IN EXTREMITY [None]
  - PLATELET COUNT DECREASED [None]
  - SUBDURAL HAEMATOMA [None]
  - SUBDURAL HAEMATOMA EVACUATION [None]
